FAERS Safety Report 9189935 (Version 1)
Quarter: 2013Q1

REPORT INFORMATION
  Report Type: Spontaneous
  Country: US (occurrence: US)
  Receive Date: 20130326
  Receipt Date: 20130326
  Transmission Date: 20140127
  Serious: No
  Sender: FDA-Public Use
  Company Number: US-PFIZER INC-2013092112

PATIENT
  Age: 78 Year
  Sex: Male
  Weight: 111 kg

DRUGS (11)
  1. TIKOSYN [Suspect]
     Indication: ATRIAL FIBRILLATION
     Dosage: 250 UG, 2X/DAY
     Dates: start: 20121207
  2. ALPHAGAN [Concomitant]
     Indication: GLAUCOMA
     Dosage: 1 GTT, DAILY
     Route: 047
  3. ALPHAGAN [Concomitant]
     Indication: CATARACT
  4. TRAVATAN [Concomitant]
     Indication: GLAUCOMA
     Dosage: UNK, DAILY
     Route: 047
  5. TRAVATAN [Concomitant]
     Indication: CATARACT
  6. INDAPAMIDE [Concomitant]
     Indication: OEDEMA
     Dosage: 2.5 MG, DAILY
  7. COUMADIN [Concomitant]
     Indication: CEREBROVASCULAR ACCIDENT
     Dosage: 5 MG, DAILY
  8. TERAZOSIN [Concomitant]
     Dosage: 10 MG, DAILY
  9. ASPIRIN [Concomitant]
     Dosage: UNK, DAILY
  10. FINASTERIDE [Concomitant]
     Dosage: 5 MG, DAILY
  11. FLOMAX [Concomitant]
     Dosage: 0.4 MG, DAILY

REACTIONS (1)
  - Dizziness [Unknown]
